FAERS Safety Report 4483543-4 (Version None)
Quarter: 2004Q4

REPORT INFORMATION
  Report Type: 
  Country: None (occurrence: None)
  Receive Date: 20041019
  Receipt Date: 20041019
  Transmission Date: 20050328
  Serious: Yes (Hospitalization)
  Sender: FDA-Public Use
  Company Number: None

PATIENT
  Sex: Male

DRUGS (16)
  1. FUROSEMIDE [Suspect]
     Indication: CARDIAC FAILURE CONGESTIVE
     Dosage: 80MG  BID ORAL
     Route: 048
  2. LISINOPRIL [Concomitant]
  3. SPIRONOLACTONE [Concomitant]
  4. METOPROLOL SUCCINATE [Concomitant]
  5. TERAZOSIN HCL [Concomitant]
  6. DOCUSATE [Concomitant]
  7. PROPOXYPHENE/APAP [Concomitant]
  8. ISOSORBIDE MONONITRATE [Concomitant]
  9. WARFARIN SODIUM [Concomitant]
  10. EPOGEN [Concomitant]
  11. FERROUS SULFATE TAB [Concomitant]
  12. FINASTERIDE [Concomitant]
  13. AMIODARONE HCL [Concomitant]
  14. SALSALATE [Concomitant]
  15. GEMFIBROZIL [Concomitant]
  16. OMPERAZOLE [Concomitant]

REACTIONS (1)
  - RENAL FAILURE ACUTE [None]
